FAERS Safety Report 11495560 (Version 1)
Quarter: 2015Q3

REPORT INFORMATION
  Report Type: Spontaneous
  Country: US (occurrence: US)
  Receive Date: 20150911
  Receipt Date: 20150911
  Transmission Date: 20151125
  Serious: No
  Sender: FDA-Public Use
  Company Number: US-ROCHE-1019024

PATIENT
  Sex: Male

DRUGS (4)
  1. PEGASYS [Suspect]
     Active Substance: PEGINTERFERON ALFA-2A
     Indication: CHRONIC HEPATITIS C
     Route: 058
     Dates: start: 20110904
  2. RIBASPHERE [Suspect]
     Active Substance: RIBAVIRIN
     Indication: CHRONIC HEPATITIS C
     Route: 048
     Dates: start: 20110904
  3. TELAPREVIR [Suspect]
     Active Substance: TELAPREVIR
     Indication: CHRONIC HEPATITIS C
     Route: 065
     Dates: start: 20110904, end: 20111126
  4. RIBASPHERE [Suspect]
     Active Substance: RIBAVIRIN
     Dosage: DOSE REDUCED
     Route: 048
     Dates: start: 20111003

REACTIONS (14)
  - Upper-airway cough syndrome [Unknown]
  - Anger [Unknown]
  - Insomnia [Unknown]
  - Gingival swelling [Unknown]
  - Proctalgia [Unknown]
  - Scab [Unknown]
  - Pulmonary oedema [Unknown]
  - Haemorrhage [Unknown]
  - Contusion [Unknown]
  - Anaemia [Unknown]
  - Rash [Unknown]
  - Irritability [Unknown]
  - Rash erythematous [Unknown]
  - Rash pruritic [Unknown]
